FAERS Safety Report 13954422 (Version 1)
Quarter: 2017Q3

REPORT INFORMATION
  Report Type: Spontaneous
  Country: US (occurrence: US)
  Receive Date: 20170909
  Receipt Date: 20170909
  Transmission Date: 20171128
  Serious: Yes (Life-Threatening)
  Sender: FDA-Public Use
  Company Number: None

PATIENT
  Sex: Male
  Weight: 85.5 kg

DRUGS (3)
  1. DIOVAN [Concomitant]
     Active Substance: VALSARTAN
  2. VALSARTAN 160MG, 320 MG [Suspect]
     Active Substance: VALSARTAN
     Indication: BLOOD PRESSURE ABNORMAL
     Dosage: ?          QUANTITY:60 TABLET(S);?
  3. NIL [Concomitant]

REACTIONS (5)
  - Blood pressure increased [None]
  - Drug ineffective [None]
  - Headache [None]
  - Product substitution issue [None]
  - Chest pain [None]

NARRATIVE: CASE EVENT DATE: 20170825
